FAERS Safety Report 5849973-0 (Version None)
Quarter: 2008Q3

REPORT INFORMATION
  Report Type: 
  Country: None (occurrence: None)
  Receive Date: 20080819
  Receipt Date: 20080806
  Transmission Date: 20090109
  Serious: Yes (Hospitalization)
  Sender: FDA-Public Use
  Company Number: FR-EISAI MEDIAL RESEARCH-E3810-01913-SPO-FR

PATIENT
  Age: 35 Year
  Sex: Female
  Weight: 50 kg

DRUGS (3)
  1. RABEPRAZOLE SODIUM [Suspect]
     Indication: PROPHYLAXIS
     Route: 048
  2. ANTI-INFLAMMATROY DRUGS [Concomitant]
     Indication: BACK PAIN
  3. CARTREX [Concomitant]
     Indication: MYALGIA
     Route: 048
     Dates: start: 20080520

REACTIONS (5)
  - ANOREXIA [None]
  - ARTHRALGIA [None]
  - DRUG ERUPTION [None]
  - TOXIC SKIN ERUPTION [None]
  - URTICARIA [None]
